FAERS Safety Report 11203071 (Version 1)
Quarter: 2015Q2

REPORT INFORMATION
  Report Type: Spontaneous
  Country: US (occurrence: None)
  Receive Date: 20150617
  Receipt Date: 20150617
  Transmission Date: 20150821
  Serious: Yes (Hospitalization, Disabling)
  Sender: FDA-Public Use
  Company Number: None

PATIENT
  Age: 62 Year
  Sex: Female
  Weight: 64.86 kg

DRUGS (5)
  1. METOPROLOL [Concomitant]
     Active Substance: METOPROLOL
  2. BENICAR HCT [Suspect]
     Active Substance: HYDROCHLOROTHIAZIDE\OLMESARTAN MEDOXOMIL
     Indication: FLUID RETENTION
     Dosage: 1 DAILY ONCE AM
     Route: 048
     Dates: end: 201501
  3. BENICAR HCT [Suspect]
     Active Substance: HYDROCHLOROTHIAZIDE\OLMESARTAN MEDOXOMIL
     Indication: HYPERTENSION
     Dosage: 1 DAILY ONCE AM
     Route: 048
     Dates: end: 201501
  4. HYZAAR/HCTZ [Concomitant]
  5. CLONODINE [Concomitant]

REACTIONS (7)
  - Abdominal pain upper [None]
  - Nausea [None]
  - Vomiting [None]
  - Dehydration [None]
  - Weight decreased [None]
  - Fatigue [None]
  - Malnutrition [None]

NARRATIVE: CASE EVENT DATE: 2010
